FAERS Safety Report 10530087 (Version 1)
Quarter: 2014Q4

REPORT INFORMATION
  Report Type: Spontaneous
  Country: US (occurrence: None)
  Receive Date: 20141020
  Receipt Date: 20141020
  Transmission Date: 20150528
  Serious: Yes (Hospitalization, Other)
  Sender: FDA-Public Use
  Company Number: None

PATIENT
  Age: 40 Year
  Sex: Male

DRUGS (1)
  1. KLONOPIN [Suspect]
     Active Substance: CLONAZEPAM
     Indication: SLEEP DISORDER
     Dosage: 2 PILLS ONCE DAILY TAKEN BY MOUTH
     Route: 048

REACTIONS (23)
  - Crying [None]
  - Feeding disorder [None]
  - Gastrointestinal disorder [None]
  - Photosensitivity reaction [None]
  - Emotional disorder [None]
  - Palpitations [None]
  - Heart rate increased [None]
  - Nausea [None]
  - Appendicitis [None]
  - Insomnia [None]
  - Visual impairment [None]
  - Arrhythmia [None]
  - Suicidal ideation [None]
  - Mobility decreased [None]
  - Bedridden [None]
  - Withdrawal syndrome [None]
  - Weight decreased [None]
  - Mental disorder [None]
  - Derealisation [None]
  - Anxiety [None]
  - Abdominal pain [None]
  - Miosis [None]
  - Endocrine disorder [None]

NARRATIVE: CASE EVENT DATE: 20140106
